FAERS Safety Report 10801181 (Version 1)
Quarter: 2015Q1

REPORT INFORMATION
  Report Type: Spontaneous
  Country: TR (occurrence: TR)
  Receive Date: 20150217
  Receipt Date: 20150217
  Transmission Date: 20150721
  Serious: Yes (Hospitalization)
  Sender: FDA-Public Use
  Company Number: TR-ROCHE-1538885

PATIENT
  Age: 46 Year
  Sex: Female
  Weight: 240 kg

DRUGS (2)
  1. ALTEPLASE [Suspect]
     Active Substance: ALTEPLASE
     Indication: PULMONARY EMBOLISM
     Route: 013
  2. HEPARIN [Suspect]
     Active Substance: HEPARIN SODIUM
     Indication: PULMONARY EMBOLISM
     Dosage: STARTED AT 1000 IU/H, ADJUSTED TO 2000 IU/H BASED ON APTT AND SGOT
     Route: 065

REACTIONS (2)
  - Postoperative wound infection [Unknown]
  - Compartment syndrome [Recovered/Resolved with Sequelae]
